FAERS Safety Report 18774404 (Version 3)
Quarter: 2021Q2

REPORT INFORMATION
  Report Type: Other
  Country: US (occurrence: US)
  Receive Date: 20210122
  Receipt Date: 20210426
  Transmission Date: 20210717
  Serious: Yes (Hospitalization, Other)
  Sender: FDA-Public Use
  Company Number: US-ROCHE-2753091

PATIENT
  Age: 51 Year
  Sex: Male
  Weight: 88.53 kg

DRUGS (26)
  1. DEXAMETHASONE. [Concomitant]
     Active Substance: DEXAMETHASONE
     Indication: PREMEDICATION
     Dosage: GOT PRIOR TO INFUSION
     Route: 042
     Dates: start: 20190912
  2. GLIMEPIRIDE. [Concomitant]
     Active Substance: GLIMEPIRIDE
     Route: 048
  3. POTASSIUM CITRATE ER [Concomitant]
     Active Substance: POTASSIUM CITRATE
     Route: 048
  4. BACLOFEN. [Concomitant]
     Active Substance: BACLOFEN
  5. OCREVUS [Suspect]
     Active Substance: OCRELIZUMAB
     Indication: PRIMARY PROGRESSIVE MULTIPLE SCLEROSIS
     Route: 042
     Dates: start: 20190912
  6. ALPRAZOLAM. [Concomitant]
     Active Substance: ALPRAZOLAM
     Dosage: TAKE 1 TABLET
     Route: 048
  7. ONDANSETRON HCL [Concomitant]
     Active Substance: ONDANSETRON HYDROCHLORIDE
     Indication: VOMITING
  8. FENOFIBRATE. [Concomitant]
     Active Substance: FENOFIBRATE
     Indication: BLOOD CHOLESTEROL
     Route: 048
     Dates: start: 202007
  9. COREG [Concomitant]
     Active Substance: CARVEDILOL
     Indication: HYPERTENSION
     Route: 048
     Dates: start: 2011
  10. OCREVUS [Suspect]
     Active Substance: OCRELIZUMAB
     Route: 065
     Dates: start: 20180222
  11. KEFLEX [Concomitant]
     Active Substance: CEPHALEXIN
  12. POTASSIUM CITRATE. [Concomitant]
     Active Substance: POTASSIUM CITRATE
     Indication: NEPHROLITHIASIS
     Route: 048
  13. FLUTICASONE PROPIONATE. [Concomitant]
     Active Substance: FLUTICASONE PROPIONATE
     Dosage: 50 MCG ACTUATION NASAL SPRAY SUSPENSION, SPRAY ONE SPRAY IN EACH NOSTRIL
  14. ALLOPURINOL. [Concomitant]
     Active Substance: ALLOPURINOL
     Dosage: TAKE 1 TABLET
     Route: 048
     Dates: start: 202007
  15. METHYLPREDNISOLONE SODIUM [Concomitant]
     Active Substance: METHYLPREDNISOLONE SODIUM SUCCINATE
  16. FENOFIBRATE. [Concomitant]
     Active Substance: FENOFIBRATE
     Dosage: TAKE 1 CAPSULE BY MOUTH EVERY DAY WITH FOOD
     Route: 048
  17. RIZATRIPTAN. [Concomitant]
     Active Substance: RIZATRIPTAN
     Dosage: TAKE 1 TABLET AT A ONSET OF MIGRAINE CAN REPEAT A 2ND TABLET WITHIN 4 HOURS IF NO RELIEF. DO NOT EXC
     Route: 048
  18. ZOFRAN [Concomitant]
     Active Substance: ONDANSETRON HYDROCHLORIDE
     Indication: NAUSEA
     Dosage: AS NEEDED FOR NAUSEA
     Route: 048
  19. DIPHENHYDRAMINE HCL [Concomitant]
     Active Substance: DIPHENHYDRAMINE HYDROCHLORIDE
  20. GABAPENTIN. [Concomitant]
     Active Substance: GABAPENTIN
     Dosage: TAKE ONE TABLET AT BEDTIME FOR ONE WEEK THEN ADVANCE TO BID THERE AFTER
  21. ZOLPIDEM [Concomitant]
     Active Substance: ZOLPIDEM TARTRATE
     Dosage: TAKE 1 TABLET BY MOUTH EVERY DAY AT BEDTIME AS NEEDED
     Route: 048
  22. GLIMEPIRIDE. [Concomitant]
     Active Substance: GLIMEPIRIDE
     Route: 048
     Dates: start: 2019
  23. XANAX [Concomitant]
     Active Substance: ALPRAZOLAM
     Indication: PANIC ATTACK
     Route: 048
  24. ZALEPLON. [Concomitant]
     Active Substance: ZALEPLON
     Indication: INSOMNIA
     Route: 048
  25. ONDANSETRON HCL [Concomitant]
     Active Substance: ONDANSETRON HYDROCHLORIDE
     Indication: NAUSEA
     Dosage: TK 2 TS PO Q 6 H PRF
     Route: 048
  26. DOXYCYCLIN [Concomitant]
     Active Substance: DOXYCYCLINE

REACTIONS (14)
  - Fall [Unknown]
  - Vision blurred [Unknown]
  - Infection [Unknown]
  - Feeling hot [Unknown]
  - Clostridium difficile infection [Recovered/Resolved]
  - Headache [Not Recovered/Not Resolved]
  - Nausea [Not Recovered/Not Resolved]
  - Chills [Unknown]
  - Arthralgia [Unknown]
  - Cholecystitis infective [Recovered/Resolved]
  - Weight increased [Not Recovered/Not Resolved]
  - Renal failure [Recovered/Resolved]
  - Joint swelling [Unknown]
  - Night sweats [Unknown]

NARRATIVE: CASE EVENT DATE: 202004
